FAERS Safety Report 15904711 (Version 2)
Quarter: 2019Q2

REPORT INFORMATION
  Report Type: Spontaneous
  Country: CA (occurrence: CA)
  Receive Date: 20190204
  Receipt Date: 20190526
  Transmission Date: 20190711
  Serious: Yes (Other)
  Sender: FDA-Public Use
  Company Number: CA-CELLTRION INC.-2018CA025191

PATIENT

DRUGS (16)
  1. VITAMIN B12 [Concomitant]
     Active Substance: CYANOCOBALAMIN
     Dosage: UNK
  2. METHYLPREDNISOLONE. [Concomitant]
     Active Substance: METHYLPREDNISOLONE
     Dosage: 20 MG, EVERY 8 HOURS
     Route: 042
  3. IRON FERROUS GLUCONATE [Concomitant]
     Active Substance: FERROUS GLUCONATE
     Dosage: UNK
  4. INFLECTRA [Suspect]
     Active Substance: INFLIXIMAB-DYYB
     Dosage: 10 MG/KG, EVERY 0, 2, 6 WEEKS
     Route: 042
     Dates: start: 20181210
  5. PREDNISONE. [Concomitant]
     Active Substance: PREDNISONE
     Dosage: UNK
  6. CALCIUM [Concomitant]
     Active Substance: CALCIUM
     Dosage: UNK
  7. PANTOPRAZOLE [Concomitant]
     Active Substance: PANTOPRAZOLE
     Dosage: UNK
  8. INFLECTRA [Suspect]
     Active Substance: INFLIXIMAB-DYYB
     Indication: COLITIS ULCERATIVE
     Dosage: 10 MG/KG OR 500 MG FOR THE FIRST 3 DOSES EVERY 0, 2, 6 WEEK
     Route: 042
     Dates: start: 20181210
  9. INFLECTRA [Suspect]
     Active Substance: INFLIXIMAB-DYYB
     Dosage: 10 MG/KG OR 500 MG,FOR THE FIRST 3 DOSES/Q,0,2,6 CWEEKS, THEN 5 MG/KG EVERY 8 WEEKS
     Route: 042
     Dates: start: 20181231
  10. INFLECTRA [Suspect]
     Active Substance: INFLIXIMAB-DYYB
     Dosage: 300 MG/KG EVERY 8 WEEKS
     Route: 042
     Dates: start: 20190321
  11. INFLECTRA [Suspect]
     Active Substance: INFLIXIMAB-DYYB
     Dosage: 5 MG/KG, EVERY 8 WEEKS
     Route: 042
  12. INFLECTRA [Suspect]
     Active Substance: INFLIXIMAB-DYYB
     Dosage: 300 MG/KG EVERY 8 WEEKS
     Route: 042
     Dates: start: 20190513
  13. INFLECTRA [Suspect]
     Active Substance: INFLIXIMAB-DYYB
     Dosage: 10 MG/KG OR 500 MG,FOR THE FIRST 3 DOSES/Q,0,2,6 CWEEKS, THEN 5 MG/KG EVERY 8 WEEKS
     Route: 042
     Dates: start: 20181231
  14. AMITRIPTYLINE [Concomitant]
     Active Substance: AMITRIPTYLINE
     Dosage: UNK
  15. INFLECTRA [Suspect]
     Active Substance: INFLIXIMAB-DYYB
     Dosage: 300 MG/KG EVERY 8 WEEKS
     Route: 042
     Dates: start: 20190125
  16. VITAMIN K [PHYTOMENADIONE] [Concomitant]
     Dosage: UNK

REACTIONS (8)
  - Tooth abscess [Unknown]
  - Heart rate irregular [Unknown]
  - Condition aggravated [Unknown]
  - Diarrhoea [Recovered/Resolved]
  - Infection [Not Recovered/Not Resolved]
  - Aeromonas infection [Recovered/Resolved]
  - Weight increased [Unknown]
  - Blood pressure fluctuation [Unknown]

NARRATIVE: CASE EVENT DATE: 20181218
